FAERS Safety Report 9116564 (Version 1)
Quarter: 2013Q1

REPORT INFORMATION
  Report Type: Spontaneous
  Country: US (occurrence: US)
  Receive Date: 20130225
  Receipt Date: 20130225
  Transmission Date: 20140127
  Serious: No
  Sender: FDA-Public Use
  Company Number: US-009507513-1302USA010565

PATIENT
  Sex: Male

DRUGS (2)
  1. AZASITE [Suspect]
     Indication: MEIBOMIAN GLAND DYSFUNCTION
     Dosage: 1 GTT, BID FOR TWO DAYS
     Route: 047
     Dates: start: 20130207
  2. AZASITE [Suspect]
     Dosage: 1 GTT, QD FOR TWO
     Route: 047

REACTIONS (4)
  - Drug dose omission [Unknown]
  - Off label use [Unknown]
  - Inappropriate schedule of drug administration [Unknown]
  - No adverse event [Unknown]
